FAERS Safety Report 5905438-9 (Version None)
Quarter: 2008Q4

REPORT INFORMATION
  Report Type: 
  Country: None (occurrence: None)
  Receive Date: 20081001
  Receipt Date: 20081001
  Transmission Date: 20090506
  Serious: Yes (Other)
  Sender: FDA-Public Use
  Company Number: None

PATIENT
  Age: 30 Year
  Sex: Female
  Weight: 74.8435 kg

DRUGS (1)
  1. NAPROXEN [Suspect]
     Indication: DYSMENORRHOEA
     Dosage: 500MG AS NEEDED PO
     Route: 048
     Dates: start: 20080116, end: 20080210

REACTIONS (6)
  - DEPRESSION [None]
  - DRUG HYPERSENSITIVITY [None]
  - INFLAMMATION [None]
  - PRURITUS [None]
  - RASH [None]
  - SCAR [None]
